FAERS Safety Report 22047178 (Version 1)
Quarter: 2023Q1

REPORT INFORMATION
  Report Type: Spontaneous
  Country: PL (occurrence: PL)
  Receive Date: 20230301
  Receipt Date: 20230301
  Transmission Date: 20230417
  Serious: Yes (Hospitalization, Other)
  Sender: FDA-Public Use
  Company Number: PL-CELLTRION INC.-2023PL003800

PATIENT

DRUGS (10)
  1. INFLIXIMAB [Suspect]
     Active Substance: INFLIXIMAB
     Indication: Coeliac disease
     Dosage: UNKNOWN
  2. INFLIXIMAB [Suspect]
     Active Substance: INFLIXIMAB
     Indication: Colitis ulcerative
  3. AZATHIOPRINE [Concomitant]
     Active Substance: AZATHIOPRINE
     Indication: Colitis ulcerative
     Dosage: UNKNOWN
  4. AZATHIOPRINE [Concomitant]
     Active Substance: AZATHIOPRINE
     Indication: Coeliac disease
  5. MESALAMINE [Concomitant]
     Active Substance: MESALAMINE
     Indication: Colitis ulcerative
     Dosage: UNKNOWN
  6. MESALAMINE [Concomitant]
     Active Substance: MESALAMINE
     Indication: Coeliac disease
  7. BUDESONIDE [Concomitant]
     Active Substance: BUDESONIDE
     Indication: Colitis ulcerative
     Dosage: UNKNOWN
  8. BUDESONIDE [Concomitant]
     Active Substance: BUDESONIDE
     Indication: Coeliac disease
  9. METRONIDAZOLE [Concomitant]
     Active Substance: METRONIDAZOLE
     Indication: Colitis ulcerative
     Dosage: UNKNOWN
  10. METRONIDAZOLE [Concomitant]
     Active Substance: METRONIDAZOLE
     Indication: Coeliac disease

REACTIONS (9)
  - Coeliac disease [Not Recovered/Not Resolved]
  - Colitis ulcerative [Not Recovered/Not Resolved]
  - Norovirus infection [Unknown]
  - Clostridium difficile infection [Unknown]
  - Drug level decreased [Unknown]
  - Drug specific antibody present [Unknown]
  - Drug ineffective [Unknown]
  - Drug ineffective for unapproved indication [Unknown]
  - Off label use [Unknown]
